FAERS Safety Report 8848379 (Version 1)
Quarter: 2012Q4

REPORT INFORMATION
  Report Type: 
  Country: AU (occurrence: AU)
  Receive Date: 20121018
  Receipt Date: 20121018
  Transmission Date: 20130627
  Serious: Yes (Other)
  Sender: FDA-Public Use
  Company Number: PHHY2012AU091533

PATIENT
  Sex: Female

DRUGS (1)
  1. CLOZARIL [Suspect]
     Dates: start: 20120927

REACTIONS (8)
  - Atelectasis [Unknown]
  - Scoliosis [Unknown]
  - Left ventricular failure [Unknown]
  - Myocardial ischaemia [Unknown]
  - Sinus tachycardia [Unknown]
  - Supraventricular tachycardia [Unknown]
  - Electrocardiogram repolarisation abnormality [Unknown]
  - Electrocardiogram T wave inversion [Unknown]
